FAERS Safety Report 17793779 (Version 4)
Quarter: 2022Q4

REPORT INFORMATION
  Report Type: Spontaneous
  Country: GB (occurrence: GB)
  Receive Date: 20200515
  Receipt Date: 20221101
  Transmission Date: 20230112
  Serious: Yes (Other)
  Sender: FDA-Public Use
  Company Number: GB-BIOGEN-2020BI00873992

PATIENT
  Age: 50 Year
  Sex: Male

DRUGS (4)
  1. PLEGRIDY [Suspect]
     Active Substance: PEGINTERFERON BETA-1A
     Indication: Rheumatoid arthritis
     Dosage: 125MCG / 0.5ML
     Route: 050
     Dates: start: 2018
  2. PLEGRIDY [Suspect]
     Active Substance: PEGINTERFERON BETA-1A
     Dosage: 125MCG / 0.5ML
     Route: 050
     Dates: start: 2018
  3. PLEGRIDY [Suspect]
     Active Substance: PEGINTERFERON BETA-1A
     Dosage: 125MCG / 0.5ML
     Route: 050
     Dates: end: 202208
  4. INSULIN NOS [Concomitant]
     Active Substance: INSULIN NOS
     Indication: Product used for unknown indication
     Route: 050

REACTIONS (17)
  - Diabetes mellitus [Unknown]
  - Drug-induced liver injury [Unknown]
  - White blood cell count decreased [Unknown]
  - Infection [Unknown]
  - Suspected COVID-19 [Unknown]
  - Tonsillitis [Unknown]
  - Cough [Unknown]
  - Chest discomfort [Unknown]
  - Dyspnoea [Unknown]
  - Off label use [Unknown]
  - Hepatic steatosis [Unknown]
  - Migraine [Unknown]
  - Product dose omission issue [Unknown]
  - Memory impairment [Unknown]
  - Pyrexia [Unknown]
  - Pain [Unknown]
  - Headache [Unknown]

NARRATIVE: CASE EVENT DATE: 20180101
